FAERS Safety Report 5337994-6 (Version None)
Quarter: 2007Q2

REPORT INFORMATION
  Report Type: 
  Country: None (occurrence: None)
  Receive Date: 20070530
  Receipt Date: 20070521
  Transmission Date: 20071010
  Serious: Yes (Other)
  Sender: FDA-Public Use
  Company Number: PHEH2007US07724

PATIENT
  Sex: Female

DRUGS (2)
  1. LOTREL [Suspect]
     Route: 048
  2. ALCOHOL [Suspect]

REACTIONS (1)
  - LOSS OF CONSCIOUSNESS [None]
